FAERS Safety Report 17775133 (Version 1)
Quarter: 2020Q2

REPORT INFORMATION
  Report Type: Spontaneous
  Country: US (occurrence: US)
  Receive Date: 20200512
  Receipt Date: 20200512
  Transmission Date: 20200714
  Serious: Yes (Other)
  Sender: FDA-Public Use
  Company Number: None

PATIENT
  Age: 78 Year
  Sex: Male
  Weight: 65.7 kg

DRUGS (11)
  1. ASPIRIN. [Concomitant]
     Active Substance: ASPIRIN
  2. BETAMETHASONE. [Concomitant]
     Active Substance: BETAMETHASONE
  3. COLESEVELAM [Concomitant]
     Active Substance: COLESEVELAM
  4. METOPROLOL. [Concomitant]
     Active Substance: METOPROLOL
  5. ACYCLOVIR. [Concomitant]
     Active Substance: ACYCLOVIR
  6. RESTASIS [Concomitant]
     Active Substance: CYCLOSPORINE
  7. NINLARO [Suspect]
     Active Substance: IXAZOMIB CITRATE
     Indication: PLASMA CELL MYELOMA
     Dosage: ?          OTHER FREQUENCY:ONCE WEEKLY;?
     Route: 048
     Dates: start: 20200417
  8. DEXAMETHASONE. [Concomitant]
     Active Substance: DEXAMETHASONE
  9. MULTIVITAMINS [Concomitant]
     Active Substance: VITAMINS
  10. PROSCAR [Concomitant]
     Active Substance: FINASTERIDE
  11. MAGNESIUM [Concomitant]
     Active Substance: MAGNESIUM

REACTIONS (2)
  - Dysuria [None]
  - Dehydration [None]
